FAERS Safety Report 19890120 (Version 9)
Quarter: 2022Q2

REPORT INFORMATION
  Report Type: Spontaneous
  Country: IN (occurrence: IN)
  Receive Date: 20210927
  Receipt Date: 20220602
  Transmission Date: 20220720
  Serious: Yes (Other)
  Sender: FDA-Public Use
  Company Number: IN-PFIZER INC-2020168804

PATIENT
  Age: 62 Year
  Sex: Female

DRUGS (5)
  1. PALBOCICLIB [Suspect]
     Active Substance: PALBOCICLIB
     Indication: Breast cancer metastatic
     Dosage: 125 MG, ONCE DAILY 21 DAYS ON OF 28 DAYS CYCLE
     Route: 048
     Dates: start: 20200307
  2. PALBOCICLIB [Suspect]
     Active Substance: PALBOCICLIB
     Dosage: 125 MG, ONCE DAILY 21 DAYS ON OF 28 DAYS CYCLE
     Route: 048
     Dates: start: 20200324
  3. PALBOCICLIB [Suspect]
     Active Substance: PALBOCICLIB
     Dosage: 100 MG, ONCE DAILY 21 DAYS ON OF 28 DAYS CYCLE
     Route: 048
  4. FULVESTRANT [Concomitant]
     Active Substance: FULVESTRANT
     Indication: Breast cancer metastatic
     Dosage: 500 MG, CYCLIC (EVERY 28 DAYS/INJ FULVESTRANT (250) DEEP IM EACH BUTTOCK)
     Route: 030
  5. FULVESTRANT [Concomitant]
     Active Substance: FULVESTRANT
     Dosage: 500 MG, (250MG DEEP IM EACH BUTTOCK (TOTAL 500MG))
     Route: 030

REACTIONS (6)
  - Neutrophil count decreased [Unknown]
  - Haemoglobin decreased [Unknown]
  - White blood cell count decreased [Unknown]
  - Neutrophil count abnormal [Unknown]
  - Full blood count decreased [Unknown]
  - Off label use [Unknown]
